FAERS Safety Report 13081228 (Version 1)
Quarter: 2017Q1

REPORT INFORMATION
  Report Type: Spontaneous
  Country: FR (occurrence: FR)
  Receive Date: 20170103
  Receipt Date: 20170103
  Transmission Date: 20170428
  Serious: Yes (Hospitalization)
  Sender: FDA-Public Use
  Company Number: FR-SA-2016SA238546

PATIENT
  Age: 70 Year
  Sex: Male

DRUGS (9)
  1. PROCORALAN [Concomitant]
     Active Substance: IVABRADINE
  2. COLCHIMAX [Suspect]
     Active Substance: COLCHICINE\DICYCLOMINE HYDROCHLORIDE
     Indication: PERICARDITIS
     Route: 048
     Dates: start: 20160926, end: 20161020
  3. TRIATEC [Concomitant]
     Active Substance: RAMIPRIL
  4. LEXOMIL [Concomitant]
     Active Substance: BROMAZEPAM
  5. SPIRIVA [Concomitant]
     Active Substance: TIOTROPIUM BROMIDE MONOHYDRATE
  6. SIMVASTATIN. [Concomitant]
     Active Substance: SIMVASTATIN
  7. INIPOMP [Concomitant]
     Active Substance: PANTOPRAZOLE SODIUM
  8. PLAVIX [Suspect]
     Active Substance: CLOPIDOGREL BISULFATE
     Indication: MYOCARDIAL ISCHAEMIA
     Route: 048
     Dates: start: 201605, end: 20161020
  9. KARDEGIC [Concomitant]
     Active Substance: ASPIRIN LYSINE

REACTIONS (3)
  - Prerenal failure [Recovered/Resolved]
  - Colitis ischaemic [Recovered/Resolved]
  - Cardiovascular insufficiency [Recovered/Resolved]

NARRATIVE: CASE EVENT DATE: 20161020
